FAERS Safety Report 22188262 (Version 2)
Quarter: 2023Q2

REPORT INFORMATION
  Report Type: Report from Study
  Country: EG (occurrence: EG)
  Receive Date: 20230408
  Receipt Date: 20230414
  Transmission Date: 20230722
  Serious: Yes (Life-Threatening, Hospitalization, Other)
  Sender: FDA-Public Use
  Company Number: EG-002147023-NVSC2023EG076196

PATIENT
  Sex: Male

DRUGS (11)
  1. ENTRESTO [Suspect]
     Active Substance: SACUBITRIL\VALSARTAN
     Indication: Cardiac failure
     Dosage: 1 DOSAGE FORM, BID (STARTED ABOUT 4 YEARS)
     Route: 048
  2. ENTRESTO [Suspect]
     Active Substance: SACUBITRIL\VALSARTAN
     Dosage: 0.5 DOSAGE FORM, BID
     Route: 048
  3. ENTRESTO [Suspect]
     Active Substance: SACUBITRIL\VALSARTAN
     Dosage: 1 DOSAGE FORM, BID
     Route: 048
  4. BISOPROLOL FUMARATE [Concomitant]
     Active Substance: BISOPROLOL FUMARATE
     Indication: Hypertension
     Dosage: 1 DOSAGE FORM, QD (AFTER LUNCH) (STARTED 4 YEARS AGO)
     Route: 048
  5. TORSEMIDE [Concomitant]
     Active Substance: TORSEMIDE
     Indication: Product used for unknown indication
     Dosage: 1 DOSAGE FORM, QD
     Route: 048
     Dates: start: 202208
  6. TORSEMIDE [Concomitant]
     Active Substance: TORSEMIDE
     Dosage: 0.5 DOSAGE FORM, QD (HE ALSO TOOK HALF TABLET/DAY)
     Route: 048
  7. PLAVIX [Concomitant]
     Active Substance: CLOPIDOGREL BISULFATE
     Indication: Cardiomyopathy
     Dosage: 1 DOSAGE FORM, QD
     Route: 048
     Dates: start: 202208
  8. ESOMEPRAZOLE [Concomitant]
     Active Substance: ESOMEPRAZOLE
     Indication: Cardiac disorder
     Dosage: 1 DOSAGE FORM, QHS (AT DINNER)
     Route: 065
     Dates: start: 202208
  9. AMARYL [Concomitant]
     Active Substance: GLIMEPIRIDE
     Indication: Diabetes mellitus
     Dosage: 1.5 DOSAGE FORM (ONE TABLET AT BREAKFAST AND HALF TABLET AFTER LUNCH)
     Route: 048
     Dates: start: 202208
  10. NEUROTON [Concomitant]
     Indication: Nervous system disorder
     Dosage: 1 DOSAGE FORM, Q48H (1 AMPOULE)
     Route: 065
     Dates: start: 202208
  11. XULTOPHY 100/3.6 [Concomitant]
     Active Substance: INSULIN DEGLUDEC\LIRAGLUTIDE
     Indication: Diabetes mellitus
     Dosage: 25 UNITS, QD (STARTED ABOUT 1 YEAR OR 9 MONTHS AGO)
     Route: 065

REACTIONS (4)
  - Fatigue [Recovering/Resolving]
  - Diabetes mellitus inadequate control [Recovering/Resolving]
  - Prescribed underdose [Unknown]
  - Wrong technique in product usage process [Unknown]
